FAERS Safety Report 5718615-7 (Version None)
Quarter: 2008Q2

REPORT INFORMATION
  Report Type: 
  Country: None (occurrence: None)
  Receive Date: 20080425
  Receipt Date: 20080414
  Transmission Date: 20081010
  Serious: Yes (Death, Other)
  Sender: FDA-Public Use
  Company Number: US-PFIZER INC-2008019785

PATIENT
  Age: 22 Year
  Sex: Male
  Weight: 112 kg

DRUGS (2)
  1. ALPRAZOLAM [Suspect]
  2. OXYCODONE HCL [Interacting]

REACTIONS (3)
  - DRUG ABUSE [None]
  - DRUG INTERACTION [None]
  - POISONING [None]
